FAERS Safety Report 6160864-0 (Version None)
Quarter: 2009Q2

REPORT INFORMATION
  Report Type: 
  Country: None (occurrence: None)
  Receive Date: 20090420
  Receipt Date: 20090408
  Transmission Date: 20091009
  Serious: Yes (Hospitalization)
  Sender: FDA-Public Use
  Company Number: JP-SANOFI-SYNTHELABO-A01200904025

PATIENT
  Age: 62 Year
  Sex: Male

DRUGS (5)
  1. SU011248 [Suspect]
     Dosage: UNK
     Route: 048
     Dates: start: 20090312, end: 20090401
  2. FLUOROURACIL [Suspect]
     Dosage: UNK
     Route: 040
     Dates: start: 20090326, end: 20090326
  3. FLUOROURACIL [Suspect]
     Dosage: UNK
     Route: 041
     Dates: start: 20090326, end: 20090327
  4. CALCIUM LEVOFOLINATE [Suspect]
     Dosage: UNK
     Route: 041
     Dates: start: 20090326, end: 20090326
  5. OXALIPLATIN [Suspect]
     Indication: COLORECTAL CANCER
     Dosage: UNK
     Route: 041
     Dates: start: 20090326, end: 20090326

REACTIONS (1)
  - HERPES VIRUS INFECTION [None]
